FAERS Safety Report 23831876 (Version 2)
Quarter: 2024Q2

REPORT INFORMATION
  Report Type: Spontaneous
  Country: US (occurrence: US)
  Receive Date: 20240508
  Receipt Date: 20240529
  Transmission Date: 20240715
  Serious: No
  Sender: FDA-Public Use
  Company Number: US-ALNYLAM PHARMACEUTICALS, INC.-ALN-2024-002437

PATIENT

DRUGS (2)
  1. OXLUMO [Suspect]
     Active Substance: LUMASIRAN
     Indication: Primary hyperoxaluria
     Dosage: 6 MILLIGRAM/KILOGRAM
     Route: 058
     Dates: start: 20240302, end: 20240302
  2. OXLUMO [Suspect]
     Active Substance: LUMASIRAN
     Dosage: 6 MILLIGRAM/KILOGRAM
     Route: 058
     Dates: start: 20240502, end: 20240502

REACTIONS (1)
  - Urine oxalate increased [Recovering/Resolving]

NARRATIVE: CASE EVENT DATE: 20240302
